FAERS Safety Report 4330208-5 (Version None)
Quarter: 2004Q2

REPORT INFORMATION
  Report Type: 
  Country: None (occurrence: None)
  Receive Date: 20040402
  Receipt Date: 20040312
  Transmission Date: 20050107
  Serious: Yes (Life-Threatening, Hospitalization)
  Sender: FDA-Public Use
  Company Number: 200413176GDDC

PATIENT
  Age: 64 Year
  Sex: Female

DRUGS (5)
  1. ARAVA [Suspect]
     Indication: RHEUMATOID ARTHRITIS
     Route: 048
     Dates: start: 20031219, end: 20040205
  2. METHOTREXATE [Concomitant]
     Indication: RHEUMATOID ARTHRITIS
     Route: 030
     Dates: start: 20030320, end: 20040205
  3. VIOXX [Concomitant]
     Indication: RHEUMATOID ARTHRITIS
     Route: 048
  4. FOLIC ACID [Concomitant]
     Indication: RHEUMATOID ARTHRITIS
     Route: 048
  5. IMOVANE [Concomitant]
     Indication: SLEEP DISORDER
     Route: 048

REACTIONS (7)
  - ANAEMIA [None]
  - BONE MARROW DEPRESSION [None]
  - BONE MARROW TOXICITY [None]
  - FEBRILE NEUTROPENIA [None]
  - HEPATIC FAILURE [None]
  - RENAL FAILURE [None]
  - SEPSIS [None]
